FAERS Safety Report 5020657-4 (Version None)
Quarter: 2006Q2

REPORT INFORMATION
  Report Type: 
  Country: None (occurrence: None)
  Receive Date: 20060602
  Receipt Date: 20060511
  Transmission Date: 20061013
  Serious: No
  Sender: FDA-Public Use
  Company Number: US200605003696

PATIENT
  Age: 16 Year
  Sex: Female

DRUGS (1)
  1. CYMBALTA [Suspect]
     Indication: HEADACHE
     Dosage: 40 MG, ORAL
     Route: 048
     Dates: end: 20060506

REACTIONS (1)
  - HEPATIC ENZYME INCREASED [None]
